FAERS Safety Report 8586765-6 (Version None)
Quarter: 2012Q3

REPORT INFORMATION
  Report Type: 
  Country: None (occurrence: None)
  Receive Date: 20120810
  Receipt Date: 20120801
  Transmission Date: 20120928
  Serious: Yes (Other)
  Sender: FDA-Public Use
  Company Number: US-ASTRAZENECA-2012SE26242

PATIENT
  Age: 58 Year
  Sex: Female

DRUGS (7)
  1. SEROQUEL XR [Suspect]
     Route: 048
  2. ACYCLOVIR [Concomitant]
  3. PROPRANOLOL [Suspect]
     Route: 048
  4. GABAPENTIN [Concomitant]
  5. HYDROCHLOROTHIAZIDE [Concomitant]
  6. LORAZEPAM [Concomitant]
  7. VYVANSE [Concomitant]

REACTIONS (4)
  - HYPERSOMNIA [None]
  - DEPRESSED MOOD [None]
  - POST PROCEDURAL COMPLICATION [None]
  - ADVERSE EVENT [None]
